FAERS Safety Report 5067058-0 (Version None)
Quarter: 2006Q3

REPORT INFORMATION
  Report Type: 
  Country: None (occurrence: None)
  Receive Date: 20060801
  Receipt Date: 20060207
  Transmission Date: 20061208
  Serious: Yes (Disabling, Other)
  Sender: FDA-Public Use
  Company Number: US-BAYER-200610702BWH

PATIENT
  Age: 52 Year
  Sex: Male

DRUGS (7)
  1. LEVITRA [Suspect]
     Indication: ERECTILE DYSFUNCTION
     Dosage: AS USED: 20 MG  UNIT DOSE: 20 MG
     Route: 048
     Dates: start: 20050701
  2. FENTANYL [Concomitant]
  3. PERCOCET [Concomitant]
     Dates: start: 19980101
  4. KLONOPIN [Concomitant]
     Indication: PAIN
  5. PHENERGAN HCL [Concomitant]
     Indication: NAUSEA
  6. PRILOSEC [Concomitant]
  7. ENSURE LIQUID DIET [Concomitant]

REACTIONS (7)
  - BLINDNESS [None]
  - DIPLOPIA [None]
  - EYE PAIN [None]
  - HEADACHE [None]
  - OPTIC NERVE INFARCTION [None]
  - VISION BLURRED [None]
  - VISUAL ACUITY REDUCED [None]
